FAERS Safety Report 25997879 (Version 1)
Quarter: 2025Q4

REPORT INFORMATION
  Report Type: Spontaneous
  Country: EU (occurrence: EU)
  Receive Date: 20251105
  Receipt Date: 20251105
  Transmission Date: 20260117
  Serious: Yes (Hospitalization, Other)
  Sender: CELLTRION
  Company Number: None

PATIENT

DRUGS (2)
  1. RITUXIMAB [Suspect]
     Active Substance: RITUXIMAB
     Indication: T-cell lymphoma
     Dosage: 100MG
     Route: 042
     Dates: start: 20251003, end: 20251003
  2. RITUXIMAB [Suspect]
     Active Substance: RITUXIMAB
     Dosage: 600MG
     Route: 042
     Dates: start: 20251009, end: 20251009

REACTIONS (2)
  - Shock symptom [Recovering/Resolving]
  - Intentional product use issue [Unknown]

NARRATIVE: CASE EVENT DATE: 20251003
